FAERS Safety Report 8073948-7 (Version None)
Quarter: 2012Q1

REPORT INFORMATION
  Report Type: 
  Country: None (occurrence: None)
  Receive Date: 20120126
  Receipt Date: 20120124
  Transmission Date: 20120608
  Serious: Yes (Other)
  Sender: FDA-Public Use
  Company Number: US-PFIZER INC-2012020136

PATIENT
  Sex: Female

DRUGS (2)
  1. CHANTIX [Suspect]
     Dosage: UNK
  2. NICOTROL [Suspect]
     Dosage: UNK
     Route: 055

REACTIONS (3)
  - MENTAL DISORDER [None]
  - DEPRESSION [None]
  - DRUG INEFFECTIVE [None]
